FAERS Safety Report 7237819-8 (Version None)
Quarter: 2011Q1

REPORT INFORMATION
  Report Type: 
  Country: None (occurrence: None)
  Receive Date: 20110121
  Receipt Date: 20110112
  Transmission Date: 20110831
  Serious: Yes (Other)
  Sender: FDA-Public Use
  Company Number: FR-JNJFOC-20110103721

PATIENT

DRUGS (14)
  1. INFLIXIMAB, RECOMBINANT [Suspect]
     Dosage: WEEK 6
     Route: 042
  2. INFLIXIMAB, RECOMBINANT [Suspect]
     Route: 042
  3. INFLIXIMAB, RECOMBINANT [Suspect]
     Route: 042
  4. INFLIXIMAB, RECOMBINANT [Suspect]
     Route: 042
  5. INFLIXIMAB, RECOMBINANT [Suspect]
     Route: 042
  6. INFLIXIMAB, RECOMBINANT [Suspect]
     Route: 042
  7. INFLIXIMAB, RECOMBINANT [Suspect]
     Dosage: WEEK 2
     Route: 042
  8. INFLIXIMAB, RECOMBINANT [Suspect]
     Dosage: WEEK 0
     Route: 042
  9. INFLIXIMAB, RECOMBINANT [Suspect]
     Route: 042
  10. INFLIXIMAB, RECOMBINANT [Suspect]
     Route: 042
  11. INFLIXIMAB, RECOMBINANT [Suspect]
     Route: 042
  12. INFLIXIMAB, RECOMBINANT [Suspect]
     Indication: PSORIATIC ARTHROPATHY
     Route: 042
  13. INFLIXIMAB, RECOMBINANT [Suspect]
     Route: 042
  14. INFLIXIMAB, RECOMBINANT [Suspect]
     Route: 042

REACTIONS (3)
  - SYNCOPE [None]
  - INFUSION RELATED REACTION [None]
  - AUTOIMMUNE NEUTROPENIA [None]
